FAERS Safety Report 5215623-X (Version None)
Quarter: 2007Q1

REPORT INFORMATION
  Report Type: 
  Country: None (occurrence: None)
  Receive Date: 20070123
  Receipt Date: 20070111
  Transmission Date: 20070707
  Serious: Yes (Other)
  Sender: FDA-Public Use
  Company Number: PHBS2007JP01005

PATIENT
  Sex: Female

DRUGS (2)
  1. TOFRANIL [Suspect]
     Indication: DEPRESSION
     Dosage: 10 MG/DAY
     Route: 048
     Dates: start: 20061219, end: 20070109
  2. DOGMATYL [Suspect]
     Route: 048
     Dates: start: 20060124, end: 20061205

REACTIONS (1)
  - VISUAL ACUITY REDUCED [None]
